FAERS Safety Report 18444906 (Version 1)
Quarter: 2020Q4

REPORT INFORMATION
  Report Type: Spontaneous
  Country: JP (occurrence: JP)
  Receive Date: 20201030
  Receipt Date: 20201030
  Transmission Date: 20210114
  Serious: Yes (Hospitalization, Other)
  Sender: FDA-Public Use
  Company Number: JP-BAYER-2019-163283

PATIENT
  Age: 54 Year
  Sex: Male

DRUGS (6)
  1. TRACLEER [Concomitant]
     Active Substance: BOSENTAN
     Indication: PULMONARY HYPERTENSION
     Dosage: 4 TABLETS
  2. PREDONINE [Concomitant]
     Active Substance: PREDNISOLONE
     Dosage: 7MG
  3. ADEMPAS [Suspect]
     Active Substance: RIOCIGUAT
     Indication: PULMONARY ARTERIAL HYPERTENSION
  4. ADEMPAS [Suspect]
     Active Substance: RIOCIGUAT
     Indication: SYSTEMIC SCLERODERMA
     Dosage: 1 MG, BID
     Route: 048
     Dates: start: 20190826
  5. ADEMPAS [Suspect]
     Active Substance: RIOCIGUAT
     Indication: PULMONARY ARTERIAL HYPERTENSION
     Dosage: 1MG IN THE MORNING
     Route: 048
     Dates: start: 20191028
  6. ADEMPAS [Suspect]
     Active Substance: RIOCIGUAT
     Indication: SYSTEMIC SCLERODERMA
     Dosage: 0.5MG AT NIGHT
     Dates: start: 20191028

REACTIONS (5)
  - Spinal column injury [Unknown]
  - Diarrhoea [Unknown]
  - Diarrhoea [Recovered/Resolved]
  - Intentional product use issue [None]
  - Headache [Recovered/Resolved]

NARRATIVE: CASE EVENT DATE: 20190902
